FAERS Safety Report 6707273-0 (Version None)
Quarter: 2010Q2

REPORT INFORMATION
  Report Type: 
  Country: None (occurrence: None)
  Receive Date: 20100503
  Receipt Date: 20090424
  Transmission Date: 20101027
  Serious: No
  Sender: FDA-Public Use
  Company Number: US-ASTRAZENECA-2009UW10365

PATIENT
  Age: 67 Year
  Sex: Female

DRUGS (9)
  1. NEXIUM [Suspect]
     Indication: OESOPHAGITIS
     Route: 048
     Dates: start: 20050101, end: 20090101
  2. NEXIUM [Suspect]
     Route: 048
     Dates: start: 20090101
  3. NEXIUM [Suspect]
     Route: 048
     Dates: start: 20090101, end: 20090101
  4. NEXIUM [Suspect]
     Route: 048
     Dates: start: 20090101
  5. NARDIL [Concomitant]
  6. STELAZINE [Concomitant]
  7. LEVOXYL [Concomitant]
  8. EVISTA [Concomitant]
  9. COZAAR [Concomitant]

REACTIONS (4)
  - BURNING SENSATION [None]
  - DRY MOUTH [None]
  - GASTRITIS [None]
  - POLYP [None]
